FAERS Safety Report 18118974 (Version 1)
Quarter: 2020Q3

REPORT INFORMATION
  Report Type: Spontaneous
  Country: IT (occurrence: IT)
  Receive Date: 20200806
  Receipt Date: 20200806
  Transmission Date: 20201103
  Serious: Yes (Other)
  Sender: FDA-Public Use
  Company Number: IT-BAYER-2020-153920

PATIENT
  Age: 82 Year
  Sex: Male

DRUGS (6)
  1. ENZALUTAMIDE [Concomitant]
     Active Substance: ENZALUTAMIDE
     Indication: METASTASES TO BONE MARROW
     Dosage: UNK
     Dates: start: 201908
  2. RADIUM?223 DICHLORIDE [Suspect]
     Active Substance: RADIUM RA-223 DICHLORIDE
     Indication: METASTASES TO BONE
  3. TRIPTORELIN [Concomitant]
     Active Substance: TRIPTORELIN
     Indication: PROSTATE CANCER
     Dosage: UNK
     Dates: start: 201608
  4. TRIPTORELIN [Concomitant]
     Active Substance: TRIPTORELIN
     Indication: METASTASES TO BONE
  5. ENZALUTAMIDE [Concomitant]
     Active Substance: ENZALUTAMIDE
     Indication: HORMONE-REFRACTORY PROSTATE CANCER
  6. RADIUM?223 DICHLORIDE [Suspect]
     Active Substance: RADIUM RA-223 DICHLORIDE
     Indication: HORMONE-REFRACTORY PROSTATE CANCER
     Dosage: 55KBQ/KG ? 6 INJECTIONS AT A 4?WEEK INTERVAL.
     Route: 042
     Dates: start: 201806, end: 201812

REACTIONS (3)
  - Acute promyelocytic leukaemia [None]
  - Diarrhoea [None]
  - Pancytopenia [None]

NARRATIVE: CASE EVENT DATE: 201908
